FAERS Safety Report 5780206-X (Version None)
Quarter: 2008Q2

REPORT INFORMATION
  Report Type: 
  Country: None (occurrence: None)
  Receive Date: 20080620
  Receipt Date: 20080606
  Transmission Date: 20081010
  Serious: Yes (Other)
  Sender: FDA-Public Use
  Company Number: PHBS2008JP04721

PATIENT
  Sex: Female

DRUGS (3)
  1. SALAGEN [Suspect]
     Indication: SJOGREN'S SYNDROME
     Dosage: 15 MG, TID
     Dates: start: 20080111, end: 20080121
  2. ANTIHYPERTENSIVE DRUGS [Suspect]
  3. ORAL ANTIDIABETICS [Suspect]

REACTIONS (1)
  - HYPERTENSION [None]
